FAERS Safety Report 8187134 (Version 2)
Quarter: 2014Q1

REPORT INFORMATION
  Report Type: Spontaneous
  Country: US (occurrence: US)
  Receive Date: 20111018
  Receipt Date: 20140109
  Transmission Date: 20141002
  Serious: No
  Sender: FDA-Public Use
  Company Number: US-ASTRAZENECA-2011SE42872

PATIENT
  Age: 45 Year
  Sex: Female
  Weight: 90.7 kg

DRUGS (9)
  1. SYMBICORT [Suspect]
     Indication: ASTHMA
     Dosage: 160/4.5 MCG  TWO PUFFS BID
     Route: 055
     Dates: start: 2006, end: 201204
  2. SYMBICORT [Suspect]
     Indication: CHRONIC OBSTRUCTIVE PULMONARY DISEASE
     Dosage: 160/4.5 MCG  TWO PUFFS BID
     Route: 055
     Dates: start: 2006, end: 201204
  3. SYMBICORT [Suspect]
     Indication: ASTHMA
     Dosage: 80/4.5 TWO PUFFS BID
     Route: 055
     Dates: start: 201204, end: 201304
  4. SYMBICORT [Suspect]
     Indication: CHRONIC OBSTRUCTIVE PULMONARY DISEASE
     Dosage: 80/4.5 TWO PUFFS BID
     Route: 055
     Dates: start: 201204, end: 201304
  5. SYMBICORT [Suspect]
     Indication: ASTHMA
     Dosage: 160/4.5 MCG  TWO PUFFS BID
     Route: 055
     Dates: start: 201304, end: 201312
  6. SYMBICORT [Suspect]
     Indication: CHRONIC OBSTRUCTIVE PULMONARY DISEASE
     Dosage: 160/4.5 MCG  TWO PUFFS BID
     Route: 055
     Dates: start: 201304, end: 201312
  7. VENTOLIN [Concomitant]
     Indication: ASTHMA
     Dosage: 90
     Route: 055
  8. VENTOLIN [Concomitant]
     Indication: CHRONIC OBSTRUCTIVE PULMONARY DISEASE
     Dosage: 90
     Route: 055
  9. TRAMADOL [Concomitant]
     Indication: PAIN IN EXTREMITY
     Dates: start: 201308

REACTIONS (6)
  - Dyspnoea [Unknown]
  - Wheezing [Unknown]
  - Limb crushing injury [Unknown]
  - Weight decreased [Unknown]
  - Drug dose omission [Not Recovered/Not Resolved]
  - Intentional drug misuse [Unknown]
